FAERS Safety Report 4520942-6 (Version None)
Quarter: 2004Q4

REPORT INFORMATION
  Report Type: 
  Country: None (occurrence: None)
  Receive Date: 20041208
  Receipt Date: 20041126
  Transmission Date: 20050328
  Serious: Yes (Hospitalization)
  Sender: FDA-Public Use
  Company Number: PHRM2004FR03479

PATIENT
  Age: 75 Year
  Sex: Female

DRUGS (3)
  1. MELLARIL [Suspect]
     Dosage: 25 DROPS/DAY
     Route: 048
  2. IMOVANE [Concomitant]
     Dosage: 7.5 MG, QD
     Route: 048
     Dates: end: 20041105
  3. METEOSPASMYL [Suspect]
     Dosage: 2 DF, BID
     Route: 048

REACTIONS (10)
  - BRADYCARDIA [None]
  - COGWHEEL RIGIDITY [None]
  - CYANOSIS [None]
  - DEPRESSED LEVEL OF CONSCIOUSNESS [None]
  - EXTRAPYRAMIDAL DISORDER [None]
  - HYPOTENSION [None]
  - MALAISE [None]
  - MASKED FACIES [None]
  - SOMNOLENCE [None]
  - SYNCOPE [None]
